FAERS Safety Report 6398960-5 (Version None)
Quarter: 2009Q4

REPORT INFORMATION
  Report Type: 
  Country: None (occurrence: None)
  Receive Date: 20091013
  Receipt Date: 20091006
  Transmission Date: 20100525
  Serious: Yes (Death, Other)
  Sender: FDA-Public Use
  Company Number: US-CELGENEUS-163-21880-09091202

PATIENT
  Sex: Male

DRUGS (4)
  1. REVLIMID [Suspect]
     Indication: MULTIPLE MYELOMA
     Route: 048
     Dates: start: 20090301, end: 20090401
  2. REVLIMID [Suspect]
     Route: 048
     Dates: start: 20080101, end: 20080101
  3. REVLIMID [Suspect]
     Route: 048
     Dates: start: 20081101, end: 20080101
  4. REVLIMID [Suspect]
     Dates: start: 20090101, end: 20090101

REACTIONS (5)
  - BLOOD COUNT ABNORMAL [None]
  - CARDIAC ARREST [None]
  - MULTI-ORGAN FAILURE [None]
  - THERAPEUTIC RESPONSE DECREASED [None]
  - WOUND INFECTION STAPHYLOCOCCAL [None]
